FAERS Safety Report 7013149-4 (Version None)
Quarter: 2010Q3

REPORT INFORMATION
  Report Type: 
  Country: None (occurrence: None)
  Receive Date: 20100924
  Receipt Date: 20100908
  Transmission Date: 20110219
  Serious: Yes (Other)
  Sender: FDA-Public Use
  Company Number: JP-ASTRAZENECA-2010SE44599

PATIENT
  Sex: Female
  Weight: 73 kg

DRUGS (4)
  1. KENZEN [Suspect]
     Indication: HYPERTENSION
     Route: 048
     Dates: start: 20100812
  2. METFORMIN [Interacting]
     Indication: TYPE 2 DIABETES MELLITUS
     Route: 048
  3. NOVONORM [Interacting]
     Indication: TYPE 2 DIABETES MELLITUS
     Route: 048
     Dates: end: 20100801
  4. NOVONORM [Interacting]
     Route: 048

REACTIONS (2)
  - HYPOGLYCAEMIA [None]
  - POTENTIATING DRUG INTERACTION [None]
